FAERS Safety Report 16544980 (Version 1)
Quarter: 2019Q3

REPORT INFORMATION
  Report Type: Spontaneous
  Country: CO (occurrence: CO)
  Receive Date: 20190709
  Receipt Date: 20190709
  Transmission Date: 20191004
  Serious: Yes (Other)
  Sender: FDA-Public Use
  Company Number: CO-BAYER-2019-128705

PATIENT
  Age: 51 Year
  Sex: Female
  Weight: 64 kg

DRUGS (2)
  1. ULTRAVIST? 300 [Suspect]
     Active Substance: IOPROMIDE
     Indication: COMPUTERISED TOMOGRAM
     Dosage: 50 UNK, UNK
  2. GASTROGRAFINA [Suspect]
     Active Substance: DIATRIZOATE MEGLUMINE\DIATRIZOATE SODIUM
     Indication: COMPUTERISED TOMOGRAM
     Dosage: 25 UNK, UNK

REACTIONS (18)
  - Urticaria [Not Recovered/Not Resolved]
  - Head discomfort [Not Recovered/Not Resolved]
  - Chest discomfort [Not Recovered/Not Resolved]
  - Contrast media allergy [Not Recovered/Not Resolved]
  - General physical health deterioration [Unknown]
  - Alanine aminotransferase increased [Not Recovered/Not Resolved]
  - Rash [Recovering/Resolving]
  - Skin warm [Not Recovered/Not Resolved]
  - Burning sensation [Not Recovered/Not Resolved]
  - Pruritus [Unknown]
  - Rash pruritic [Recovering/Resolving]
  - Hypersensitivity [None]
  - Chest pain [Not Recovered/Not Resolved]
  - Inflammation [Not Recovered/Not Resolved]
  - Abdominal distension [Unknown]
  - Feeling hot [Not Recovered/Not Resolved]
  - Urticaria [Unknown]
  - Hot flush [Not Recovered/Not Resolved]

NARRATIVE: CASE EVENT DATE: 201905
